FAERS Safety Report 9096501 (Version 1)
Quarter: 2013Q1

REPORT INFORMATION
  Report Type: Spontaneous
  Country: US (occurrence: US)
  Receive Date: 20130211
  Receipt Date: 20130211
  Transmission Date: 20140127
  Serious: Yes (Other)
  Sender: FDA-Public Use
  Company Number: US-ELI_LILLY_AND_COMPANY-US201302000960

PATIENT
  Age: 48 Year
  Sex: Female

DRUGS (6)
  1. ZYPREXA [Suspect]
     Indication: SCHIZOPHRENIA, PARANOID TYPE
     Dosage: 15 MG, UNK
     Dates: start: 201205
  2. HALOPERIDOL [Concomitant]
     Dosage: 15 MG, UNK
     Dates: start: 201205
  3. HALOPERIDOL [Concomitant]
     Dosage: 20 MG, UNK
  4. CLONAZEPAM [Concomitant]
     Dosage: 0.5 MG, EACH EVENING
     Dates: start: 201205
  5. FLUNITRAZEPAM [Concomitant]
  6. VALPROIC ACID [Concomitant]

REACTIONS (1)
  - Electrocardiogram QT prolonged [Recovering/Resolving]
